FAERS Safety Report 22014032 (Version 1)
Quarter: 2023Q1

REPORT INFORMATION
  Report Type: Report from Study
  Country: PL (occurrence: PL)
  Receive Date: 20230221
  Receipt Date: 20230221
  Transmission Date: 20230418
  Serious: Yes (Life-Threatening, Hospitalization)
  Sender: FDA-Public Use
  Company Number: PL-BEIGENE AUS PTY LTD-BGN-2022-009927

PATIENT
  Age: 74 Year
  Sex: Male
  Weight: 48 kg

DRUGS (6)
  1. ZANIDATAMAB [Suspect]
     Active Substance: ZANIDATAMAB
     Indication: Oesophageal adenocarcinoma
     Dosage: 1800 MG, Q3W
     Route: 042
     Dates: start: 20220927, end: 20221014
  2. TISLELIZUMAB [Suspect]
     Active Substance: TISLELIZUMAB
     Indication: Oesophageal adenocarcinoma
     Dosage: 200 MG, Q3W
     Route: 042
     Dates: start: 20220927, end: 20221014
  3. CAPECITABINE [Suspect]
     Active Substance: CAPECITABINE
     Indication: Oesophageal adenocarcinoma
     Dosage: 1000 MG/M2, BID
     Route: 048
     Dates: start: 20220927, end: 20221003
  4. CAPECITABINE [Suspect]
     Active Substance: CAPECITABINE
     Dosage: 500 MG/M2, BID
     Route: 065
     Dates: start: 20221102
  5. LOPERAMIDE [Concomitant]
     Active Substance: LOPERAMIDE
     Indication: Prophylaxis against diarrhoea
     Dosage: UNK
     Route: 065
     Dates: start: 20220927
  6. LOPERAMIDE [Concomitant]
     Active Substance: LOPERAMIDE
     Dosage: 28 MG, QD
     Route: 065
     Dates: start: 20221002

REACTIONS (1)
  - Diarrhoea [Recovered/Resolved]

NARRATIVE: CASE EVENT DATE: 20221007
